FAERS Safety Report 20163987 (Version 1)
Quarter: 2021Q4

REPORT INFORMATION
  Report Type: Spontaneous
  Country: IN (occurrence: IN)
  Receive Date: 20211209
  Receipt Date: 20211209
  Transmission Date: 20220303
  Serious: Yes (Other)
  Sender: FDA-Public Use
  Company Number: IN-SUN PHARMACEUTICAL INDUSTRIES LTD-2021R1-319477

PATIENT
  Age: 30 Year
  Sex: Male

DRUGS (1)
  1. PHENYTOIN [Suspect]
     Active Substance: PHENYTOIN
     Indication: Neurocysticercosis
     Dosage: 100-200 MG, DAILY
     Route: 048

REACTIONS (6)
  - Neurotoxicity [Unknown]
  - Mastication disorder [Unknown]
  - Dysarthria [Unknown]
  - Headache [Unknown]
  - Gait disturbance [Unknown]
  - Gingival hypertrophy [Unknown]
